FAERS Safety Report 21389820 (Version 1)
Quarter: 2022Q3

REPORT INFORMATION
  Report Type: Spontaneous
  Country: BR (occurrence: BR)
  Receive Date: 20220929
  Receipt Date: 20220929
  Transmission Date: 20221027
  Serious: Yes (Hospitalization, Other)
  Sender: FDA-Public Use
  Company Number: BR-CELLTRION INC.-2022BR015794

PATIENT

DRUGS (6)
  1. INFLIXIMAB [Suspect]
     Active Substance: INFLIXIMAB
     Indication: Colitis ulcerative
     Dosage: 3 AMPOULES EVERY 2 MONTHS VIA ENDOVENOUS ROUTE
     Route: 042
  2. INFLIXIMAB [Suspect]
     Active Substance: INFLIXIMAB
     Indication: Colitis ulcerative
     Dosage: FIRST INFUSION WAS IN WEEK 0 WITH 3 AMPOULES
     Dates: start: 20220815
  3. INFLIXIMAB [Suspect]
     Active Substance: INFLIXIMAB
     Dosage: ANOTHER ONE AFTER 15 DAYS WITH 3 AMPOULES
     Dates: start: 20220826
  4. AZATHIOPRINE [Concomitant]
     Active Substance: AZATHIOPRINE
     Indication: Colitis ulcerative
     Dosage: 1 PILL PER DAY
     Route: 048
     Dates: start: 20220916
  5. CALCIUM\VITAMIN D [Concomitant]
     Active Substance: CALCIUM\VITAMIN D
     Indication: Nutritional supplementation
     Dosage: 2 PILLS PER DAY (500 MG AND 400 MG)
     Route: 048
     Dates: start: 20220916
  6. IRON POLYMALTOSE [Concomitant]
     Active Substance: IRON POLYMALTOSE
     Indication: Anaemia
     Dosage: 1 AMPOULE EVERY 2 DAYS VIA ENDOVENOUS ROUTE; STOP: WILL MAKE 6 AMPOULES
     Route: 042
     Dates: start: 20220917

REACTIONS (10)
  - Diarrhoea [Not Recovered/Not Resolved]
  - Haemorrhage [Not Recovered/Not Resolved]
  - Anaemia [Not Recovered/Not Resolved]
  - Asthenia [Not Recovered/Not Resolved]
  - Pain [Unknown]
  - Condition aggravated [Unknown]
  - Product communication issue [Unknown]
  - Therapy interrupted [Unknown]
  - Drug ineffective [Unknown]
  - Off label use [Unknown]

NARRATIVE: CASE EVENT DATE: 20220921
